FAERS Safety Report 9654805 (Version 1)
Quarter: 2013Q4

REPORT INFORMATION
  Report Type: Spontaneous
  Country: JP (occurrence: None)
  Receive Date: 20131015
  Receipt Date: 20131015
  Transmission Date: 20140711
  Serious: Yes (Death)
  Sender: FDA-Public Use
  Company Number: 2013038259

PATIENT
  Age: 34 Year
  Sex: Female

DRUGS (2)
  1. INTRAVENOUS IMMUNOGLOBULIN [Suspect]
     Indication: MENINGITIS PNEUMOCOCCAL
  2. CORTICOSTEROIDS (CORTICOSTEROIDS) [Concomitant]

REACTIONS (3)
  - Drug ineffective [None]
  - Respiratory failure [None]
  - Vasculitis [None]
